FAERS Safety Report 16642279 (Version 1)
Quarter: 2019Q3

REPORT INFORMATION
  Report Type: Report from Study
  Country: US (occurrence: US)
  Receive Date: 20190729
  Receipt Date: 20190729
  Transmission Date: 20191004
  Serious: Yes (Other)
  Sender: FDA-Public Use
  Company Number: US-OTSUKA-2019_027178

PATIENT
  Sex: Male

DRUGS (1)
  1. BREXPIPRAZOLE [Suspect]
     Active Substance: BREXPIPRAZOLE
     Indication: ANXIETY DISORDER
     Dosage: 3 MG, QD
     Route: 048

REACTIONS (4)
  - Catatonia [Unknown]
  - Stupor [Unknown]
  - Product use in unapproved indication [Unknown]
  - Incorrect dose administered [Unknown]
